FAERS Safety Report 23946938 (Version 5)
Quarter: 2024Q3

REPORT INFORMATION
  Report Type: Spontaneous
  Country: VN (occurrence: VN)
  Receive Date: 20240606
  Receipt Date: 20240812
  Transmission Date: 20241016
  Serious: Yes (Hospitalization, Other)
  Sender: SANDOZ
  Company Number: VN-002147023-NVSC2024VN116100

PATIENT
  Age: 65 Year
  Sex: Male
  Weight: 49.9 kg

DRUGS (13)
  1. CLOFAZIMINE [Suspect]
     Active Substance: CLOFAZIMINE
     Indication: Tuberculosis
     Dosage: PHARMACEUTICAL DOSE FORM: SOFT GELATIN CAPSULE
     Route: 048
     Dates: start: 20231212, end: 20240619
  2. LEVOFLOXACIN [Suspect]
     Active Substance: LEVOFLOXACIN
     Indication: Tuberculosis
     Dosage: 1000 MG, QD
     Route: 048
     Dates: start: 20231212, end: 20240619
  3. LINEZOLID [Suspect]
     Active Substance: LINEZOLID
     Indication: Tuberculosis
     Dosage: 300 MG, QD
     Route: 048
     Dates: start: 20231212, end: 20240319
  4. BISOPROLOL [Concomitant]
     Active Substance: BISOPROLOL\BISOPROLOL FUMARATE
     Indication: Product used for unknown indication
     Dosage: 30 TABS, 1 TAB DAILY IN THE MORNING
     Route: 065
     Dates: start: 20240608, end: 20240624
  5. ASPIRIN\CLOPIDOGREL [Concomitant]
     Active Substance: ASPIRIN\CLOPIDOGREL
     Dosage: 30 TAB, 1 TAB/DAY
     Route: 065
     Dates: start: 20240702, end: 20240703
  6. ASPIRIN\CLOPIDOGREL [Concomitant]
     Active Substance: ASPIRIN\CLOPIDOGREL
     Indication: Product used for unknown indication
     Dosage: 30 TABS, 1 TAB DAILY AFTER THE MEAL
     Route: 065
     Dates: start: 20240608, end: 20240624
  7. FRANILAX [Concomitant]
     Indication: Product used for unknown indication
     Dosage: 30 TABS, 1 TAB/DAY
     Route: 065
     Dates: start: 20240702, end: 20240703
  8. ROSUVASTATIN [Concomitant]
     Active Substance: ROSUVASTATIN\ROSUVASTATIN CALCIUM
     Dosage: 30 TAB, 1 TAB/DAY
     Route: 065
     Dates: start: 20240702, end: 20240703
  9. ROSUVASTATIN [Concomitant]
     Active Substance: ROSUVASTATIN\ROSUVASTATIN CALCIUM
     Indication: Product used for unknown indication
     Dosage: 30 TABS, 1 TAB DAILY IN THE EVENING
     Route: 065
     Dates: start: 20240608, end: 20240624
  10. DIETARY SUPPLEMENT\HERBALS\MILK THISTLE [Concomitant]
     Active Substance: MILK THISTLE
     Indication: Product used for unknown indication
     Dosage: 20 TABS, 2TABS/DAY
     Route: 065
     Dates: start: 20240702, end: 20240703
  11. SPIRONOLACTONE [Concomitant]
     Active Substance: SPIRONOLACTONE
     Indication: Product used for unknown indication
     Dosage: 30 TABS, 1 TAB DAILY IN THE MORNING
     Route: 065
     Dates: start: 20240608, end: 20240624
  12. ZESTRIL [Concomitant]
     Active Substance: LISINOPRIL
     Dosage: 15 TABS, 1/2 TAB/DAY
     Route: 065
     Dates: start: 20240702, end: 20240703
  13. ZESTRIL [Concomitant]
     Active Substance: LISINOPRIL
     Indication: Product used for unknown indication
     Dosage: UNK30 TABS, 1 TAB DAILY IN THE MORNING
     Route: 065
     Dates: start: 20240608, end: 20240624

REACTIONS (3)
  - Myocardial infarction [Recovered/Resolved]
  - Bradycardia [Recovered/Resolved]
  - Electrocardiogram QT prolonged [Recovered/Resolved]

NARRATIVE: CASE EVENT DATE: 20240529
